FAERS Safety Report 5158828-9 (Version None)
Quarter: 2006Q4

REPORT INFORMATION
  Report Type: 
  Country: None (occurrence: None)
  Receive Date: 20061128
  Receipt Date: 20061019
  Transmission Date: 20070319
  Serious: Yes (Hospitalization)
  Sender: FDA-Public Use
  Company Number: US-SANOFI-SYNTHELABO-A03200606379

PATIENT
  Sex: Female
  Weight: 77.1 kg

DRUGS (6)
  1. ZETIA [Suspect]
     Route: 048
     Dates: start: 20020101
  2. NORVASC [Concomitant]
     Route: 048
     Dates: start: 20020101
  3. XANAX [Concomitant]
     Route: 048
  4. TOPROL-XL [Concomitant]
     Route: 048
     Dates: start: 20030101
  5. PREVACID [Concomitant]
     Route: 048
  6. PLAVIX [Suspect]
     Indication: ARTERIAL REPAIR
     Route: 048
     Dates: start: 20030101, end: 20060817

REACTIONS (4)
  - JOINT SWELLING [None]
  - OESOPHAGEAL ULCER [None]
  - PHARMACEUTICAL PRODUCT COMPLAINT [None]
  - URINARY TRACT DISORDER [None]
